FAERS Safety Report 4527724-X (Version None)
Quarter: 2004Q4

REPORT INFORMATION
  Report Type: 
  Country: None (occurrence: None)
  Receive Date: 20041122
  Receipt Date: 20040621
  Transmission Date: 20050328
  Serious: No
  Sender: FDA-Public Use
  Company Number: 2004-0007105

PATIENT
  Sex: Male
  Weight: 99.7913 kg

DRUGS (4)
  1. HEPSERA [Suspect]
     Indication: HEPATITIS B
     Dosage: 10 MG, 1 IN 1 D, ORAL
     Route: 048
     Dates: start: 20031015, end: 20040424
  2. ALTACE (RAMIPRIL) [Concomitant]
  3. AVANDAMET [Concomitant]
  4. RANITIDINE [Concomitant]

REACTIONS (1)
  - DRUG INEFFECTIVE [None]
